FAERS Safety Report 15539181 (Version 5)
Quarter: 2020Q2

REPORT INFORMATION
  Report Type: Report from Study
  Country: US (occurrence: US)
  Receive Date: 20181022
  Receipt Date: 20200402
  Transmission Date: 20200713
  Serious: Yes (Hospitalization)
  Sender: FDA-Public Use
  Company Number: US-ACTELION-A-NJ2018-180524

PATIENT
  Sex: Female
  Weight: 62.59 kg

DRUGS (5)
  1. REMODULIN [Concomitant]
     Active Substance: TREPROSTINIL
  2. XARELTO [Concomitant]
     Active Substance: RIVAROXABAN
  3. SILDENAFIL CITRATE. [Concomitant]
     Active Substance: SILDENAFIL CITRATE
  4. TRACLEER [Suspect]
     Active Substance: BOSENTAN
     Indication: PULMONARY ARTERIAL HYPERTENSION
     Dosage: 125 MG, BID
     Route: 048
     Dates: end: 20200207
  5. TREPROSTINIL. [Concomitant]
     Active Substance: TREPROSTINIL

REACTIONS (6)
  - Umbilical hernia repair [Unknown]
  - Fluid overload [Unknown]
  - Headache [Recovered/Resolved]
  - Functional gastrointestinal disorder [Recovered/Resolved]
  - Atrial fibrillation [Unknown]
  - Intestinal obstruction [Unknown]
